FAERS Safety Report 5133787-3 (Version None)
Quarter: 2006Q4

REPORT INFORMATION
  Report Type: 
  Country: None (occurrence: None)
  Receive Date: 20061018
  Receipt Date: 20061008
  Transmission Date: 20070319
  Serious: Yes (Other)
  Sender: FDA-Public Use
  Company Number: 2006123743

PATIENT
  Sex: Male

DRUGS (1)
  1. COOL MINT LISTERINE (MENTHOL, METHYL SALICYLATE, EUCALYPTOL, THYMOL) [Suspect]
     Dosage: 3 OUNCES ONCE, ORAL
     Route: 048
     Dates: start: 20061008, end: 20061008

REACTIONS (2)
  - INTENTIONAL DRUG MISUSE [None]
  - POISONING [None]
